FAERS Safety Report 5219466-2 (Version None)
Quarter: 2007Q1

REPORT INFORMATION
  Report Type: 
  Country: None (occurrence: None)
  Receive Date: 20070125
  Receipt Date: 20070117
  Transmission Date: 20070707
  Serious: Yes (Other)
  Sender: FDA-Public Use
  Company Number: US-PFIZER INC-2006142973

PATIENT
  Sex: Female
  Weight: 47.2 kg

DRUGS (5)
  1. XANAX XR [Suspect]
     Indication: DEPRESSION
  2. XANAX XR [Suspect]
     Indication: ANXIETY
  3. ZOLOFT [Suspect]
     Indication: DEPRESSION
  4. ZOLOFT [Suspect]
     Indication: ANXIETY
  5. IBUPROFEN [Concomitant]

REACTIONS (8)
  - ABDOMINAL PAIN UPPER [None]
  - ABNORMAL FAECES [None]
  - DECREASED APPETITE [None]
  - FAECES DISCOLOURED [None]
  - FAECES PALE [None]
  - HEPATIC PAIN [None]
  - INSOMNIA [None]
  - VISION BLURRED [None]
